FAERS Safety Report 14837088 (Version 1)
Quarter: 2018Q2

REPORT INFORMATION
  Report Type: Spontaneous
  Country: US (occurrence: US)
  Receive Date: 20180502
  Receipt Date: 20180502
  Transmission Date: 20180711
  Serious: Yes (Other)
  Sender: FDA-Public Use
  Company Number: US-SA-2018SA120557

PATIENT
  Age: 40 Year
  Sex: Female

DRUGS (2)
  1. ARAVA [Suspect]
     Active Substance: LEFLUNOMIDE
     Indication: ARTHRITIS
     Route: 048
     Dates: start: 2017, end: 2017
  2. HUMIRA [Suspect]
     Active Substance: ADALIMUMAB
     Indication: PSORIATIC ARTHROPATHY
     Route: 058
     Dates: end: 2017

REACTIONS (6)
  - Feeling abnormal [Unknown]
  - Medical device removal [Unknown]
  - Confusional state [Unknown]
  - Therapeutic response shortened [Unknown]
  - Patella fracture [Unknown]
  - Arthritis [Unknown]

NARRATIVE: CASE EVENT DATE: 2017
